FAERS Safety Report 10661876 (Version 4)
Quarter: 2022Q3

REPORT INFORMATION
  Report Type: Spontaneous
  Country: BR (occurrence: BR)
  Receive Date: 20141218
  Receipt Date: 20220821
  Transmission Date: 20221026
  Serious: Yes (Hospitalization, Other)
  Sender: FDA-Public Use
  Company Number: BR-GLAXOSMITHKLINE-B0895455A

PATIENT
  Age: 28 Year
  Sex: Male
  Weight: 94 kg

DRUGS (6)
  1. PROPAFENONE [Suspect]
     Active Substance: PROPAFENONE
     Indication: Atrial fibrillation
     Dosage: 300 MG, BID
     Route: 048
     Dates: start: 201004, end: 201206
  2. PROPAFENONE [Suspect]
     Active Substance: PROPAFENONE
     Dosage: 900 MG, U
     Dates: start: 2010
  3. PROPAFENONE [Suspect]
     Active Substance: PROPAFENONE
     Dosage: UNK UNK, U
     Dates: start: 201012, end: 201206
  4. PROPAFENONE [Suspect]
     Active Substance: PROPAFENONE
     Dosage: 600 MG, QD
  5. ATENOLOL [Concomitant]
     Active Substance: ATENOLOL
     Indication: Blood pressure measurement
     Dosage: 1 UNK, QD
     Route: 048
     Dates: start: 201004
  6. AMIODARONE HYDROCHLORIDE [Concomitant]
     Active Substance: AMIODARONE HYDROCHLORIDE
     Indication: Arrhythmia
     Dosage: 2010-2010 AND12 MAY 2013 TO 14 MAY 2013
     Route: 042

REACTIONS (2)
  - Atrial fibrillation [Recovered/Resolved]
  - Atrial fibrillation [Recovered/Resolved]

NARRATIVE: CASE EVENT DATE: 20101201
